FAERS Safety Report 26175737 (Version 1)
Quarter: 2025Q4

REPORT INFORMATION
  Report Type: Spontaneous
  Country: EU (occurrence: EU)
  Receive Date: 20251218
  Receipt Date: 20251218
  Transmission Date: 20260118
  Serious: Yes (Other)
  Sender: NOVARTIS
  Company Number: None

PATIENT
  Age: 80 Year
  Sex: Male

DRUGS (14)
  1. LUTETIUM LU-177 VIPIVOTIDE TETRAXETAN [Suspect]
     Active Substance: LUTETIUM LU-177 VIPIVOTIDE TETRAXETAN
     Indication: Prostate cancer metastatic
     Dosage: 7400 MBQ
     Route: 042
     Dates: start: 20220615, end: 20220615
  2. LUTETIUM LU-177 VIPIVOTIDE TETRAXETAN [Suspect]
     Active Substance: LUTETIUM LU-177 VIPIVOTIDE TETRAXETAN
     Dosage: 7046 MBQ
     Route: 042
     Dates: start: 20220802, end: 20220802
  3. LUTETIUM LU-177 VIPIVOTIDE TETRAXETAN [Suspect]
     Active Substance: LUTETIUM LU-177 VIPIVOTIDE TETRAXETAN
     Dosage: 7127 MBQ
     Route: 042
     Dates: start: 20220922, end: 20220922
  4. LUTETIUM LU-177 VIPIVOTIDE TETRAXETAN [Suspect]
     Active Substance: LUTETIUM LU-177 VIPIVOTIDE TETRAXETAN
     Dosage: 7059 MBQ
     Route: 042
     Dates: start: 20221103, end: 20221103
  5. LUTETIUM LU-177 VIPIVOTIDE TETRAXETAN [Suspect]
     Active Substance: LUTETIUM LU-177 VIPIVOTIDE TETRAXETAN
     Dosage: 7150 MBQ
     Route: 042
     Dates: start: 20221222, end: 20221222
  6. LUTETIUM LU-177 VIPIVOTIDE TETRAXETAN [Suspect]
     Active Substance: LUTETIUM LU-177 VIPIVOTIDE TETRAXETAN
     Dosage: 7400 MBQ
     Route: 042
     Dates: start: 20230202, end: 20230202
  7. BISOPROLOL [Concomitant]
     Active Substance: BISOPROLOL
     Indication: Hypertension
     Dosage: 2.5 MG, Q12H
     Route: 048
  8. FUROSEMIDE [Concomitant]
     Active Substance: FUROSEMIDE
     Indication: Hypertension
     Dosage: 40 MG, QD
     Route: 048
  9. DIGOXIN [Concomitant]
     Active Substance: DIGOXIN
     Indication: Cardiomyopathy
     Dosage: 0.25 MG, QD
     Route: 048
  10. TELMISARTAN [Concomitant]
     Active Substance: TELMISARTAN
     Indication: Hypertension
     Dosage: 40 MG, QD
     Route: 048
  11. DAPAGLIFLOZIN [Concomitant]
     Active Substance: DAPAGLIFLOZIN
     Indication: Cardiomyopathy
     Dosage: 10 MG, QD
     Route: 048
  12. ELIQUIS [Concomitant]
     Active Substance: APIXABAN
     Indication: Atrial fibrillation
     Dosage: 5 MG
     Route: 048
  13. TAHOR [Concomitant]
     Active Substance: ATORVASTATIN CALCIUM
     Indication: Cardiovascular event prophylaxis
     Dosage: 10 MG, QD
     Route: 048
  14. XTANDI [Concomitant]
     Active Substance: ENZALUTAMIDE
     Indication: Prostate cancer metastatic
     Dosage: 160 MG, QD
     Route: 048
     Dates: start: 202203, end: 20240725

REACTIONS (1)
  - Acute myeloid leukaemia [Not Recovered/Not Resolved]

NARRATIVE: CASE EVENT DATE: 20240718
